FAERS Safety Report 16966483 (Version 2)
Quarter: 2019Q4

REPORT INFORMATION
  Report Type: Spontaneous
  Country: ZA (occurrence: ZA)
  Receive Date: 20191028
  Receipt Date: 20191107
  Transmission Date: 20200122
  Serious: Yes (Hospitalization)
  Sender: FDA-Public Use
  Company Number: ZA-PFIZER INC-2019461939

PATIENT
  Age: 53 Year
  Sex: Male
  Weight: 98 kg

DRUGS (7)
  1. COXLEON [Concomitant]
     Active Substance: CELECOXIB
     Dosage: 200 MG, DAILY
     Route: 048
     Dates: start: 20190807, end: 20190815
  2. CYKLOKAPRON [Suspect]
     Active Substance: TRANEXAMIC ACID
     Dosage: 1 G, 8H
     Route: 042
     Dates: start: 20190808, end: 20190809
  3. METOCLOPRAMIDE. [Concomitant]
     Active Substance: METOCLOPRAMIDE
     Dosage: 10 MG, 8H
     Route: 042
     Dates: start: 20190808, end: 20190814
  4. PARACETAMOL [Concomitant]
     Active Substance: ACETAMINOPHEN
     Dosage: 1 G, 6H
     Route: 042
     Dates: start: 20190808, end: 20190809
  5. CYKLOKAPRON [Suspect]
     Active Substance: TRANEXAMIC ACID
     Dosage: 1 G, 8H
     Dates: start: 20190813, end: 20190815
  6. EMISTOP [Concomitant]
     Active Substance: ONDANSETRON HYDROCHLORIDE
     Dosage: 4 MG, 8H
     Route: 042
     Dates: start: 20190808, end: 20190811
  7. CO AMOXYCLAV [Concomitant]
     Active Substance: AMOXICILLIN\CLAVULANIC ACID
     Dosage: 1.2 G, 8H
     Route: 042
     Dates: start: 20190808, end: 20190812

REACTIONS (2)
  - Wound secretion [Not Recovered/Not Resolved]
  - Haematoma [Not Recovered/Not Resolved]

NARRATIVE: CASE EVENT DATE: 20190808
